FAERS Safety Report 9182096 (Version 1)
Quarter: 2012Q4

REPORT INFORMATION
  Report Type: 
  Country: BR (occurrence: BR)
  Receive Date: 20121030
  Receipt Date: 20121030
  Transmission Date: 20130627
  Serious: Yes (Other)
  Sender: FDA-Public Use
  Company Number: PHHY2012BR097237

PATIENT
  Sex: Female

DRUGS (2)
  1. DIOVAN HCT [Suspect]
     Indication: BLOOD PRESSURE
     Dosage: 1 DF (320/12.5mg) daily
  2. ASPIRIN [Concomitant]
     Dosage: UNK UKN, UNK

REACTIONS (3)
  - Cataract [Recovering/Resolving]
  - Visual impairment [Recovering/Resolving]
  - Dizziness [Recovering/Resolving]
